FAERS Safety Report 23760041 (Version 4)
Quarter: 2025Q2

REPORT INFORMATION
  Report Type: Spontaneous
  Country: IN (occurrence: IN)
  Receive Date: 20240419
  Receipt Date: 20250625
  Transmission Date: 20250716
  Serious: Yes (Other)
  Sender: SANDOZ
  Company Number: IN-SANDOZ-SDZ2024IN040473

PATIENT
  Sex: Male

DRUGS (6)
  1. MYFORTIC [Suspect]
     Active Substance: MYCOPHENOLATE SODIUM
     Indication: Renal transplant
     Dosage: 360 MG, QD
     Route: 048
  2. MYFORTIC [Suspect]
     Active Substance: MYCOPHENOLATE SODIUM
     Route: 048
  3. TACROLIMUS [Suspect]
     Active Substance: TACROLIMUS
     Dosage: 1.5 MG, BID
     Route: 048
  4. TACROLIMUS [Suspect]
     Active Substance: TACROLIMUS
     Indication: Renal transplant
     Dosage: 2 MG, QD
     Route: 048
  5. TACROLIMUS [Suspect]
     Active Substance: TACROLIMUS
     Route: 048
  6. TACROLIMUS [Suspect]
     Active Substance: TACROLIMUS
     Dosage: 3 MG, QD, 1.5 MG, BID
     Route: 048

REACTIONS (22)
  - Congenital cystic kidney disease [Unknown]
  - Intestinal sepsis [Unknown]
  - Sepsis associated acute kidney injury [Unknown]
  - Pancreatitis acute [Unknown]
  - Swelling [Unknown]
  - Blood pressure fluctuation [Unknown]
  - Epistaxis [Unknown]
  - Hypoalbuminaemia [Unknown]
  - Electrolyte imbalance [Unknown]
  - Heart rate increased [Unknown]
  - Decreased appetite [Unknown]
  - Somnolence [Unknown]
  - Cytomegalovirus infection [Unknown]
  - Urine output decreased [Unknown]
  - Asthenia [Unknown]
  - Pyrexia [Unknown]
  - Hypoglycaemia [Unknown]
  - Weight increased [Unknown]
  - Hypertension [Unknown]
  - Abdominal pain [Unknown]
  - Constipation [Unknown]
  - Off label use [Unknown]

NARRATIVE: CASE EVENT DATE: 20240101
